FAERS Safety Report 8458662-8 (Version None)
Quarter: 2012Q2

REPORT INFORMATION
  Report Type: 
  Country: None (occurrence: None)
  Receive Date: 20120622
  Receipt Date: 20120612
  Transmission Date: 20120825
  Serious: Yes (Hospitalization)
  Sender: FDA-Public Use
  Company Number: US-BAYER-2011-085326

PATIENT
  Age: 53 Year
  Sex: Female

DRUGS (9)
  1. YASMIN [Suspect]
     Indication: CONTRACEPTION
     Dosage: UNK
     Route: 048
     Dates: start: 20060601, end: 20060901
  2. VITAMIN B6 [Concomitant]
     Dosage: DAILY
     Dates: start: 20060830
  3. YAZ [Suspect]
     Indication: CONTRACEPTION
     Dosage: UNK
     Route: 048
     Dates: start: 20060601, end: 20060901
  4. ELAVIL [Concomitant]
     Dosage: 25 MG, HS
     Dates: start: 20060830
  5. REQUIP [Concomitant]
     Dosage: 1 MG, HS
     Dates: start: 20060830
  6. TERAZOL 7 [Concomitant]
     Indication: FUNGAL INFECTION
     Dosage: UNK
     Dates: start: 20060629
  7. ASPIRIN [Concomitant]
     Dosage: 81 MG, DAILY
     Dates: start: 20060830
  8. PROTONIX [Concomitant]
  9. VITAMIN B-12 [Concomitant]
     Dosage: DAILY
     Dates: start: 20060830

REACTIONS (2)
  - PULMONARY EMBOLISM [None]
  - PAIN [None]
